FAERS Safety Report 12937306 (Version 2)
Quarter: 2016Q4

REPORT INFORMATION
  Report Type: Spontaneous
  Country: US (occurrence: US)
  Receive Date: 20161114
  Receipt Date: 20161129
  Transmission Date: 20170207
  Serious: No
  Sender: FDA-Public Use
  Company Number: US-PFIZER INC-2016366277

PATIENT
  Age: 47 Year
  Sex: Female
  Weight: 68.27 kg

DRUGS (3)
  1. PRISTIQ EXTENDED-RELEASE [Suspect]
     Active Substance: DESVENLAFAXINE SUCCINATE
     Indication: DEPRESSION
     Dosage: 100 MG, DAILY
     Route: 048
     Dates: start: 201605, end: 201609
  2. CELEBREX [Concomitant]
     Active Substance: CELECOXIB
     Dosage: UNK
  3. CYMBALTA [Suspect]
     Active Substance: DULOXETINE HYDROCHLORIDE
     Indication: FIBROMYALGIA
     Dosage: 120 MG, 1X/DAY IN THE MORNING
     Route: 048
     Dates: start: 201609

REACTIONS (2)
  - Crying [Unknown]
  - Serum serotonin increased [Recovered/Resolved]

NARRATIVE: CASE EVENT DATE: 201609
